FAERS Safety Report 19719694 (Version 1)
Quarter: 2021Q3

REPORT INFORMATION
  Report Type: Spontaneous
  Country: US (occurrence: US)
  Receive Date: 20210819
  Receipt Date: 20210819
  Transmission Date: 20211014
  Serious: No
  Sender: FDA-Public Use
  Company Number: None

PATIENT
  Age: 42 Year
  Sex: Female
  Weight: 132.21 kg

DRUGS (10)
  1. JARDIANCE [Concomitant]
     Active Substance: EMPAGLIFLOZIN
  2. LEVOTHYROXINE. [Concomitant]
     Active Substance: LEVOTHYROXINE
  3. LIDOCAINE?PRILOCAINE [Concomitant]
     Active Substance: LIDOCAINE\PRILOCAINE
  4. MEDICAL MARIJUANA [Concomitant]
     Active Substance: CANNABIS SATIVA SUBSP. INDICA TOP
  5. POTASSIUM [Concomitant]
     Active Substance: POTASSIUM
  6. CAPECITABINE. [Suspect]
     Active Substance: CAPECITABINE
     Indication: BREAST CANCER
     Dosage: ?          OTHER FREQUENCY:BID 14/21 DAYS;?
     Route: 048
     Dates: start: 20210803, end: 20210812
  7. JANUVIA [Concomitant]
     Active Substance: SITAGLIPTIN PHOSPHATE
  8. MIADERM [Concomitant]
  9. PEPCID [Concomitant]
     Active Substance: FAMOTIDINE
  10. FERROUS GLUCONATE [Concomitant]
     Active Substance: FERROUS GLUCONATE

REACTIONS (16)
  - Pruritus [None]
  - Joint stiffness [None]
  - Joint swelling [None]
  - Chills [None]
  - Head discomfort [None]
  - Diarrhoea [None]
  - Tongue disorder [None]
  - Tremor [None]
  - Pain in extremity [None]
  - Arthralgia [None]
  - Urticaria [None]
  - Burning sensation [None]
  - Nausea [None]
  - Muscle spasms [None]
  - Gastrooesophageal reflux disease [None]
  - Fatigue [None]

NARRATIVE: CASE EVENT DATE: 20210803
